FAERS Safety Report 6905089-3 (Version None)
Quarter: 2010Q3

REPORT INFORMATION
  Report Type: 
  Country: None (occurrence: None)
  Receive Date: 20100804
  Receipt Date: 20090911
  Transmission Date: 20110219
  Serious: No
  Sender: FDA-Public Use
  Company Number: US-PFIZER INC-2009244921

PATIENT
  Sex: Female

DRUGS (2)
  1. LYRICA [Suspect]
     Indication: FIBROMYALGIA
     Dosage: 50 MG, 3X/DAY
  2. LYRICA [Suspect]
     Dosage: 100 MG, 2X/DAY

REACTIONS (2)
  - SOMNOLENCE [None]
  - VISION BLURRED [None]
